FAERS Safety Report 24125744 (Version 1)
Quarter: 2024Q3

REPORT INFORMATION
  Report Type: Spontaneous
  Country: CN (occurrence: CN)
  Receive Date: 20240723
  Receipt Date: 20240723
  Transmission Date: 20241016
  Serious: Yes (Life-Threatening)
  Sender: PFIZER
  Company Number: CN-PFIZER INC-PV202400094946

PATIENT
  Age: 37 Year
  Sex: Female
  Weight: 45 kg

DRUGS (9)
  1. LINEZOLID [Suspect]
     Active Substance: LINEZOLID
     Indication: Pneumonia
     Dosage: 0.6 G, 2X/DAY (SELF PREPARED NASAL FEEDING)
     Route: 048
     Dates: start: 20240616, end: 20240626
  2. CEFOPERAZONE SODIUM\SULBACTAM SODIUM [Suspect]
     Active Substance: CEFOPERAZONE SODIUM\SULBACTAM SODIUM
     Indication: Pneumonia
     Dosage: 3 G, 3X/DAY
     Route: 041
     Dates: start: 20240625, end: 20240704
  3. CIPROFLOXACIN LACTATE [Suspect]
     Active Substance: CIPROFLOXACIN LACTATE
     Indication: Pneumonia
     Dosage: 0.4 G, 3X/DAY
     Route: 041
     Dates: start: 20240625, end: 20240704
  4. ACETYLCYSTEINE [Concomitant]
     Active Substance: ACETYLCYSTEINE
     Indication: Chemical poisoning
     Dosage: 0.6 G, 2X/DAY (NASAL FEEDING)
     Dates: start: 20240607, end: 20240704
  5. SODIUM CHLORIDE [Concomitant]
     Active Substance: SODIUM CHLORIDE
     Indication: Vehicle solution use
     Dosage: 20 ML, 3X/DAY
     Route: 041
     Dates: start: 20240625, end: 20240704
  6. IMIPENEM AND CILASTATIN SODIUM [Concomitant]
     Active Substance: CILASTATIN SODIUM\IMIPENEM
     Indication: Pneumonia
     Dosage: 1 G, 3X/DAY
     Route: 041
     Dates: start: 20240609, end: 20240625
  7. ESOMEPRAZOLE SODIUM [Concomitant]
     Active Substance: ESOMEPRAZOLE SODIUM
     Indication: Chemical poisoning
     Dosage: 32 MG, EVERY 4 HRS
     Route: 042
     Dates: start: 20240610
  8. ESOMEPRAZOLE SODIUM [Concomitant]
     Active Substance: ESOMEPRAZOLE SODIUM
     Dosage: 40 MG, 2X/DAY
     Route: 041
     Dates: start: 20240619, end: 20240626
  9. HERBALS [Concomitant]
     Active Substance: HERBALS
     Indication: Chemical poisoning
     Dosage: 20 ML, 1X/DAY
     Route: 041
     Dates: start: 20240623, end: 20240703

REACTIONS (7)
  - International normalised ratio increased [Recovering/Resolving]
  - Prothrombin time prolonged [Recovering/Resolving]
  - Thrombin time prolonged [Recovering/Resolving]
  - Coagulopathy [Recovering/Resolving]
  - Activated partial thromboplastin time prolonged [Recovering/Resolving]
  - Off label use [Unknown]
  - Off label use [Unknown]

NARRATIVE: CASE EVENT DATE: 20240616
